FAERS Safety Report 5024499-5 (Version None)
Quarter: 2006Q2

REPORT INFORMATION
  Report Type: 
  Country: None (occurrence: None)
  Receive Date: 20060613
  Receipt Date: 20060602
  Transmission Date: 20061013
  Serious: Yes (Other)
  Sender: FDA-Public Use
  Company Number: GB-JNJFOC-20050704181

PATIENT
  Sex: Female
  Weight: 29.2 kg

DRUGS (2)
  1. CONCERTA [Suspect]
     Indication: ATTENTION DEFICIT/HYPERACTIVITY DISORDER
     Route: 065
  2. RITALIN [Concomitant]
     Indication: ATTENTION DEFICIT/HYPERACTIVITY DISORDER
     Route: 065

REACTIONS (2)
  - ARTHRITIS [None]
  - NEUTROPENIA [None]
